FAERS Safety Report 11877464 (Version 1)
Quarter: 2015Q4

REPORT INFORMATION
  Report Type: Spontaneous
  Country: CA (occurrence: CA)
  Receive Date: 20151229
  Receipt Date: 20151229
  Transmission Date: 20160305
  Serious: Yes (Other)
  Sender: FDA-Public Use
  Company Number: CA-009507513-1508CAN005022

PATIENT
  Age: 49 Year
  Sex: Male

DRUGS (1)
  1. TEMODAL [Suspect]
     Active Substance: TEMOZOLOMIDE
     Indication: PANCREATIC NEUROENDOCRINE TUMOUR METASTATIC
     Dosage: 400 MG, Q5D
     Route: 048
     Dates: start: 20150715

REACTIONS (2)
  - Off label use [Unknown]
  - Abdominal hernia repair [Unknown]

NARRATIVE: CASE EVENT DATE: 20150715
